FAERS Safety Report 6917126-0 (Version None)
Quarter: 2010Q3

REPORT INFORMATION
  Report Type: 
  Country: None (occurrence: None)
  Receive Date: 20100810
  Receipt Date: 20100803
  Transmission Date: 20110219
  Serious: Yes (Hospitalization)
  Sender: FDA-Public Use
  Company Number: B0669250A

PATIENT
  Age: 57 Year
  Sex: Female

DRUGS (5)
  1. PAROXETINE HCL [Suspect]
     Indication: HEADACHE
     Dates: start: 19940101
  2. PIPERACILLINE [Suspect]
     Indication: PRODUCT USED FOR UNKNOWN INDICATION
     Route: 042
     Dates: start: 20100101
  3. GENTAMICINE [Suspect]
     Indication: PRODUCT USED FOR UNKNOWN INDICATION
     Route: 065
     Dates: start: 20100101
  4. SPIRIVA [Concomitant]
  5. SEREVENT [Concomitant]

REACTIONS (6)
  - AGITATION [None]
  - DRUG INTERACTION [None]
  - PAIN [None]
  - PSEUDOMONAS INFECTION [None]
  - RESTLESSNESS [None]
  - SUICIDAL IDEATION [None]
